FAERS Safety Report 14557324 (Version 1)
Quarter: 2018Q1

REPORT INFORMATION
  Report Type: Spontaneous
  Country: US (occurrence: US)
  Receive Date: 20180221
  Receipt Date: 20180221
  Transmission Date: 20180509
  Serious: Yes (Hospitalization, Other)
  Sender: FDA-Public Use
  Company Number: US-BAYER-2018-032260

PATIENT
  Sex: Female

DRUGS (2)
  1. MIRALAX [Suspect]
     Active Substance: POLYETHYLENE GLYCOL 3350
     Indication: DIVERTICULUM
     Dosage: 2 DF, QD
     Route: 048
     Dates: start: 201711
  2. CALCIUM [Concomitant]
     Active Substance: CALCIUM
     Dosage: UNK

REACTIONS (19)
  - Incorrect dosage administered [Unknown]
  - Blood sodium decreased [Unknown]
  - Abdominal distension [Not Recovered/Not Resolved]
  - Blood pressure systolic increased [Unknown]
  - Product prescribing issue [Unknown]
  - Hypertension [Unknown]
  - Hospitalisation [Unknown]
  - Flatulence [Not Recovered/Not Resolved]
  - Blood sodium decreased [Unknown]
  - Off label use [Unknown]
  - Product use in unapproved indication [Unknown]
  - Incorrect dosage administered [Unknown]
  - Blood pressure decreased [Unknown]
  - Product use issue [Unknown]
  - Haemorrhoids [Not Recovered/Not Resolved]
  - Product prescribing issue [Unknown]
  - Frequent bowel movements [Not Recovered/Not Resolved]
  - Gastrointestinal motility disorder [Unknown]
  - Colonoscopy [Unknown]

NARRATIVE: CASE EVENT DATE: 201711
